FAERS Safety Report 5642531-2 (Version None)
Quarter: 2008Q1

REPORT INFORMATION
  Report Type: 
  Country: None (occurrence: None)
  Receive Date: 20080228
  Receipt Date: 20080215
  Transmission Date: 20080703
  Serious: Yes (Death)
  Sender: FDA-Public Use
  Company Number: AU-AVENTIS-200811347GDDC

PATIENT
  Age: 65 Year
  Sex: Male
  Weight: 102 kg

DRUGS (8)
  1. PLACEBO [Suspect]
     Route: 042
     Dates: start: 20080121, end: 20080121
  2. DOCETAXEL [Suspect]
     Route: 042
     Dates: start: 20080121, end: 20080121
  3. PREDNISONE TAB [Suspect]
     Route: 048
     Dates: start: 20071210, end: 20080204
  4. MOBIC [Concomitant]
     Route: 048
  5. COLOXYL WITH SENNA [Concomitant]
  6. ZOLADEX [Concomitant]
     Dates: start: 20061231
  7. OXYCONTIN [Concomitant]
     Route: 048
  8. ENDONE [Concomitant]
     Route: 048

REACTIONS (1)
  - ACUTE MYOCARDIAL INFARCTION [None]
